FAERS Safety Report 24720891 (Version 1)
Quarter: 2024Q4

REPORT INFORMATION
  Report Type: Spontaneous
  Country: FI (occurrence: FI)
  Receive Date: 20241211
  Receipt Date: 20241211
  Transmission Date: 20250114
  Serious: Yes (Other)
  Sender: BIOGEN
  Company Number: FI-002147023-NVSC2024FI215857

PATIENT
  Age: 44 Year
  Sex: Female

DRUGS (3)
  1. PLEGRIDY [Suspect]
     Active Substance: PEGINTERFERON BETA-1A
     Indication: Multiple sclerosis
     Dosage: UNK
     Route: 050
     Dates: start: 2017
  2. PLEGRIDY [Suspect]
     Active Substance: PEGINTERFERON BETA-1A
  3. GILENYA [Suspect]
     Active Substance: FINGOLIMOD HYDROCHLORIDE
     Indication: Multiple sclerosis
     Dosage: UNK
     Route: 050
     Dates: start: 201610

REACTIONS (4)
  - Leukopenia [Unknown]
  - Lymphopenia [Unknown]
  - Infection [Unknown]
  - Urinary tract infection [Unknown]
